FAERS Safety Report 9729954 (Version 2)
Quarter: 2013Q4

REPORT INFORMATION
  Report Type: Spontaneous
  Country: IT (occurrence: IT)
  Receive Date: 20131204
  Receipt Date: 20131226
  Transmission Date: 20140711
  Serious: Yes (Death)
  Sender: FDA-Public Use
  Company Number: IT-MPIJNJ-2013MPI001128

PATIENT
  Sex: 0

DRUGS (5)
  1. VELCADE [Suspect]
     Indication: PLASMA CELL MYELOMA
     Dosage: 1.3 MG/M2, ON DAYS 1, 4, 8 AND 11 OF EVERY 4 WEEKS
     Route: 042
  2. BENDAMUSTINE [Suspect]
     Indication: PLASMA CELL MYELOMA
     Dosage: 70 MG/M2, ON DAYS 1 AND 8 OF EVERY 4 WEEKS
     Route: 042
  3. DEXAMETHASONE [Suspect]
     Indication: PLASMA CELL MYELOMA
     Dosage: 20 MG, ON DAYS 1, 2, 4, 5, 8, 9, 11, AND 12 EVERY 4 WEEKS
  4. DEXAMETHASONE [Suspect]
     Dosage: 20 MG, ON DAYS 1, 8, 15 AND 22 OF EVERY 4 WEEKS
  5. TRIMETOPRIM W/SULFAMETOXAZOL [Concomitant]
     Indication: ANTIFUNGAL PROPHYLAXIS

REACTIONS (1)
  - Sudden death [Fatal]
